FAERS Safety Report 8507085-1 (Version None)
Quarter: 2012Q3

REPORT INFORMATION
  Report Type: 
  Country: None (occurrence: None)
  Receive Date: 20120712
  Receipt Date: 20120702
  Transmission Date: 20120928
  Serious: Yes (Life-Threatening)
  Sender: FDA-Public Use
  Company Number: FR-ALLERGAN-1209178US

PATIENT
  Age: 62 Year
  Sex: Male

DRUGS (6)
  1. SUFENTANIL CITRATE [Suspect]
     Indication: ANAESTHESIA
     Dosage: 15 UNITS, UNKNOWN
     Route: 042
     Dates: start: 20110606
  2. BIMATOPROST AND TIMOLOL MALEATE [Suspect]
     Indication: GLAUCOMA
     Dosage: UNK
     Route: 047
     Dates: start: 20000101
  3. TRUSOPT [Concomitant]
     Indication: GLAUCOMA
     Dosage: UNK
     Dates: start: 20000101
  4. NIMBEX [Suspect]
     Indication: ANAESTHESIA
     Dosage: 12 MG, SINGLE (IV, SYRINGE PUMP)
     Route: 042
     Dates: start: 20110606
  5. DIPRIVAN [Suspect]
     Indication: ANAESTHESIA
     Dosage: 150 MG, UNKNOWN
     Route: 042
     Dates: start: 20110606
  6. ULTIVA [Suspect]
     Indication: ANAESTHESIA
     Dosage: 1.5 MG/KG/MIN
     Route: 042
     Dates: start: 20110606

REACTIONS (1)
  - CARDIAC ARREST [None]
